FAERS Safety Report 8949019 (Version 1)
Quarter: 2012Q4

REPORT INFORMATION
  Report Type: 
  Country: US (occurrence: US)
  Receive Date: 20121206
  Receipt Date: 20121206
  Transmission Date: 20130627
  Serious: No
  Sender: FDA-Public Use
  Company Number: US-BAYER-2012-121277

PATIENT
  Age: 49 Year
  Sex: Female

DRUGS (4)
  1. BETASERON [Suspect]
     Indication: MS
     Dosage: 0.25 mg, QOD
     Route: 058
     Dates: start: 20121107
  2. VISTARIL [Concomitant]
     Indication: PREMEDICATION
  3. BENADRYL [Concomitant]
     Indication: PREMEDICATION
  4. TYLENOL [PARACETAMOL] [Concomitant]
     Indication: PREMEDICATION

REACTIONS (5)
  - Anxiety [None]
  - Feeling cold [None]
  - Flushing [None]
  - Muscle spasms [None]
  - Pyrexia [None]
